FAERS Safety Report 16856485 (Version 7)
Quarter: 2023Q2

REPORT INFORMATION
  Report Type: Spontaneous
  Country: CA (occurrence: CA)
  Receive Date: 20190926
  Receipt Date: 20230627
  Transmission Date: 20230722
  Serious: Yes (Other)
  Sender: FDA-Public Use
  Company Number: CA-PFIZER INC-2019357013

PATIENT
  Age: 26 Year
  Sex: Female
  Weight: 45 kg

DRUGS (4)
  1. XELJANZ [Suspect]
     Active Substance: TOFACITINIB CITRATE
     Indication: Colitis ulcerative
     Dosage: 10 MG, TWICE A DAY
     Route: 048
     Dates: start: 20190809, end: 201911
  2. XELJANZ [Suspect]
     Active Substance: TOFACITINIB CITRATE
     Dosage: 5 MG, TWICE A DAY
     Route: 048
     Dates: start: 201911, end: 2020
  3. XELJANZ [Suspect]
     Active Substance: TOFACITINIB CITRATE
     Dosage: 10MG,2X/DAY
     Route: 048
     Dates: start: 2020
  4. MESALAMINE [Concomitant]
     Active Substance: MESALAMINE
     Dosage: 1.2 G, DAILY (4 TABS )
     Route: 048

REACTIONS (6)
  - Rectal haemorrhage [Recovering/Resolving]
  - Flatulence [Unknown]
  - Abdominal pain [Unknown]
  - Dry mouth [Unknown]
  - Faecal calprotectin abnormal [Unknown]
  - Condition aggravated [Recovered/Resolved]

NARRATIVE: CASE EVENT DATE: 20190101
